FAERS Safety Report 7436710-1 (Version None)
Quarter: 2011Q2

REPORT INFORMATION
  Report Type: 
  Country: None (occurrence: None)
  Receive Date: 20110426
  Receipt Date: 20110414
  Transmission Date: 20111010
  Serious: Yes (Hospitalization)
  Sender: FDA-Public Use
  Company Number: JP-BAYER-2011-033565

PATIENT
  Age: 74 Year
  Sex: Male

DRUGS (13)
  1. SORAFENIB (RAF KINASE INHIBITOR) [Suspect]
     Dosage: 800 MG, QD
     Dates: start: 20100921, end: 20110227
  2. ADOFEED [Concomitant]
     Dosage: UNK
     Route: 062
     Dates: start: 20090701
  3. OLMETEC [Concomitant]
     Dosage: UNK
     Route: 048
     Dates: start: 20090701
  4. MAGLAX [Concomitant]
     Dosage: DAILY DOSE 750 MG
     Route: 048
     Dates: start: 20090701
  5. GASTER [Concomitant]
     Dosage: DAILY DOSE 20 MG
     Route: 048
     Dates: start: 20101021
  6. ASPIRIN [Concomitant]
     Dosage: DAILY DOSE 100 MG
     Route: 048
     Dates: start: 20090701
  7. SORAFENIB (RAF KINASE INHIBITOR) [Suspect]
     Dosage: 800 MG, QD
     Route: 048
     Dates: start: 20110304
  8. SORAFENIB (RAF KINASE INHIBITOR) [Suspect]
     Indication: HEPATIC NEOPLASM MALIGNANT
     Dosage: 400 MG, QD
     Route: 048
     Dates: start: 20100830, end: 20100920
  9. FRANDOL [Concomitant]
     Dosage: UNK
     Route: 062
     Dates: start: 20090701
  10. TOPSYM [Concomitant]
     Dosage: UNK
     Route: 061
     Dates: start: 20101104
  11. KERATINAMIN [Concomitant]
     Dosage: UNK
     Route: 061
     Dates: start: 20100825
  12. PURSENNID [Concomitant]
     Dosage: DAILY DOSE 12 MG
     Route: 048
     Dates: start: 20080626
  13. SIGMART [Concomitant]
     Dosage: DAILY DOSE 15 MG
     Route: 048
     Dates: start: 20090701

REACTIONS (4)
  - PALMAR-PLANTAR ERYTHRODYSAESTHESIA SYNDROME [None]
  - PAIN OF SKIN [None]
  - DEEP VEIN THROMBOSIS [None]
  - BLOOD PRESSURE INCREASED [None]
